FAERS Safety Report 16803402 (Version 1)
Quarter: 2019Q3

REPORT INFORMATION
  Report Type: Spontaneous
  Country: BR (occurrence: BR)
  Receive Date: 20190913
  Receipt Date: 20190913
  Transmission Date: 20191005
  Serious: Yes (Other)
  Sender: FDA-Public Use
  Company Number: BR-EMD SERONO-9115711

PATIENT
  Age: 47 Year
  Sex: Female

DRUGS (2)
  1. GLIFAGE [Suspect]
     Active Substance: METFORMIN HYDROCHLORIDE
     Indication: TYPE 2 DIABETES MELLITUS
     Dosage: 1 TABLET AFTER THE BREAKFAST, 1 AFTER LUNCH AND 2 AFTER DINNER
     Route: 048
     Dates: start: 201903
  2. GLIBENCLAMIDE [Concomitant]
     Active Substance: GLYBURIDE
     Indication: PRODUCT USED FOR UNKNOWN INDICATION
     Dosage: 1 BEFORE BREAKFAST AND ANOTHER BEFORE DINNER

REACTIONS (6)
  - Blood glucose increased [Unknown]
  - Tremor [Unknown]
  - Tachycardia [Unknown]
  - Glycosylated haemoglobin abnormal [Unknown]
  - Nausea [Unknown]
  - Blood pressure increased [Unknown]

NARRATIVE: CASE EVENT DATE: 201903
